FAERS Safety Report 20633693 (Version 2)
Quarter: 2022Q2

REPORT INFORMATION
  Report Type: Report from Study
  Country: RU (occurrence: RU)
  Receive Date: 20220324
  Receipt Date: 20220408
  Transmission Date: 20220721
  Serious: Yes (Death)
  Sender: FDA-Public Use
  Company Number: RU-JNJFOC-20220345868

PATIENT
  Age: 65 Year
  Sex: Female
  Weight: 59 kg

DRUGS (15)
  1. AMIVANTAMAB [Suspect]
     Active Substance: AMIVANTAMAB
     Indication: Non-small cell lung cancer
     Route: 042
     Dates: start: 20211223, end: 20220303
  2. AMLODIPINE [Concomitant]
     Active Substance: AMLODIPINE BESYLATE
     Indication: Hypertension
     Route: 048
     Dates: start: 20180101
  3. CANDESARTAN [Concomitant]
     Active Substance: CANDESARTAN
     Indication: Hypertension
     Route: 048
     Dates: start: 20180101
  4. IPRATROPIUM BROMIDE + FENOTEROL [Concomitant]
     Indication: Asthma
     Route: 055
     Dates: start: 20190101
  5. ONDANSETRON [Concomitant]
     Active Substance: ONDANSETRON
     Indication: Nausea
     Route: 048
     Dates: start: 20220110
  6. PROTEIN DIET [Concomitant]
     Indication: Hypoalbuminaemia
     Route: 048
     Dates: start: 20220112
  7. DEXAMETHASONE [Concomitant]
     Active Substance: DEXAMETHASONE
     Indication: Infusion related reaction
     Route: 042
     Dates: start: 20220203, end: 20220203
  8. CHLOROPYRAMINE [Concomitant]
     Active Substance: CHLOROPYRAMINE
     Indication: Infusion related reaction
     Route: 042
     Dates: start: 20220203, end: 20220203
  9. CAPTOPRIL [Concomitant]
     Active Substance: CAPTOPRIL
     Indication: Infusion related reaction
     Route: 048
     Dates: start: 20220203, end: 20220203
  10. CAPTOPRIL [Concomitant]
     Active Substance: CAPTOPRIL
     Route: 048
     Dates: start: 20220217, end: 20220217
  11. MAGNESIUM SULFATE [Concomitant]
     Active Substance: MAGNESIUM SULFATE
     Indication: Infusion related reaction
     Route: 042
     Dates: start: 20220203, end: 20220203
  12. MAGNESIUM SULFATE [Concomitant]
     Active Substance: MAGNESIUM SULFATE
     Route: 042
     Dates: start: 20220217, end: 20220217
  13. POTASSIUM CHLORIDE [Concomitant]
     Active Substance: POTASSIUM CHLORIDE
     Indication: Infusion related reaction
     Route: 042
     Dates: start: 20220203, end: 20220203
  14. CITICOLINE [Concomitant]
     Active Substance: CITICOLINE
     Indication: Vestibular disorder
     Route: 048
     Dates: start: 20220217, end: 20220303
  15. INOSINE;NICOTINAMIDE;RIBOFLAVIN;SUCCINIC ACID [Concomitant]
     Indication: Vestibular disorder
     Route: 048
     Dates: start: 20220218, end: 20220314

REACTIONS (1)
  - Pneumonia [Fatal]

NARRATIVE: CASE EVENT DATE: 20220321
